FAERS Safety Report 5204930-2 (Version None)
Quarter: 2007Q1

REPORT INFORMATION
  Report Type: 
  Country: None (occurrence: None)
  Receive Date: 20070110
  Receipt Date: 20060906
  Transmission Date: 20070707
  Serious: No
  Sender: FDA-Public Use
  Company Number: US-BRISTOL-MYERS SQUIBB COMPANY-13500475

PATIENT
  Age: 59 Year
  Sex: Male
  Weight: 100 kg

DRUGS (10)
  1. ABILIFY [Suspect]
     Indication: SCHIZOAFFECTIVE DISORDER
     Route: 048
     Dates: start: 20060305
  2. GLIPIZIDE [Concomitant]
     Indication: DIABETES MELLITUS
  3. HUMULIN R [Concomitant]
     Indication: DIABETES MELLITUS
  4. GEMFIBROZIL [Concomitant]
  5. CHLORPROMAZINE [Concomitant]
  6. COMBIVENT [Concomitant]
  7. ACTOS [Concomitant]
  8. AVAPRO [Concomitant]
  9. ZYRTEC [Concomitant]
  10. PRAVACHOL [Concomitant]

REACTIONS (1)
  - RESTLESSNESS [None]
